FAERS Safety Report 5181025-8 (Version None)
Quarter: 2006Q4

REPORT INFORMATION
  Report Type: 
  Country: None (occurrence: None)
  Receive Date: 20061220
  Receipt Date: 20061012
  Transmission Date: 20070319
  Serious: Yes (Disabling)
  Sender: FDA-Public Use
  Company Number: JP-ELI_LILLY_AND_COMPANY-JP200610002670

PATIENT
  Age: 46 Year
  Sex: Female

DRUGS (10)
  1. EMILACE [Concomitant]
     Dosage: 3 MG, DAILY (1/D)
     Route: 048
     Dates: start: 20060921
  2. NEULEPTIL [Concomitant]
     Dosage: 75 MG, DAILY (1/D)
     Route: 048
  3. PZC [Concomitant]
     Dosage: 24 MG, DAILY (1/D)
     Route: 048
     Dates: start: 20060112, end: 20060209
  4. ZYPREXA [Suspect]
     Indication: SCHIZOPHRENIA
     Dosage: 2.5 MG, DAILY (1/D)
     Route: 048
     Dates: start: 20020101, end: 20041101
  5. ZYPREXA [Suspect]
     Dosage: 2.5 MG, DAILY (1/D)
     Route: 048
     Dates: end: 20061005
  6. ZYPREXA [Suspect]
     Dosage: 2.5 MG, DAILY (1/D)
     Route: 048
     Dates: start: 20061019
  7. RISPERDAL                               /SWE/ [Concomitant]
     Indication: SCHIZOPHRENIA
     Route: 048
  8. SEROQUEL [Concomitant]
     Indication: SCHIZOPHRENIA
     Dosage: UNK, UNK
     Route: 048
     Dates: start: 20041102, end: 20041129
  9. TOLOPELON [Concomitant]
     Indication: SCHIZOPHRENIA
     Dosage: 9 MG, DAILY (1/D)
     Route: 048
     Dates: start: 20060906, end: 20061005
  10. LULLAN                                  /JPN/ [Concomitant]
     Indication: SCHIZOPHRENIA
     Route: 065

REACTIONS (2)
  - EYELID PTOSIS [None]
  - TIC [None]
